FAERS Safety Report 9099323 (Version 3)
Quarter: 2013Q2

REPORT INFORMATION
  Report Type: Report from Study
  Country: IE (occurrence: IE)
  Receive Date: 20130214
  Receipt Date: 20130508
  Transmission Date: 20140414
  Serious: Yes (Other)
  Sender: FDA-Public Use
  Company Number: IE-BAYER-2013-018368

PATIENT
  Age: 66 Year
  Sex: Male
  Weight: 88 kg

DRUGS (8)
  1. NEXAVAR [Suspect]
     Indication: METASTATIC RENAL CELL CARCINOMA
     Dosage: 800 MG 2-3 WEEKS
     Route: 048
     Dates: start: 201301, end: 2013
  2. NEXAVAR [Suspect]
     Indication: METASTATIC RENAL CELL CARCINOMA
     Dosage: 400 MG 2-3 WEEKS
     Route: 048
     Dates: start: 2013, end: 2013
  3. NEXAVAR [Suspect]
     Indication: METASTATIC RENAL CELL CARCINOMA
     Dosage: 200 MG, BID
     Route: 048
     Dates: start: 20130201, end: 20130210
  4. ISTIN [Concomitant]
  5. SEPTRIN [Concomitant]
  6. OXYCONTIN [Concomitant]
  7. SOLPADEINE [Concomitant]
  8. NEXIUM [Concomitant]

REACTIONS (6)
  - Abasia [None]
  - Pain in extremity [None]
  - Dermatitis bullous [None]
  - Rash erythematous [None]
  - Fatigue [None]
  - Photodermatosis [None]
